FAERS Safety Report 8099457-7 (Version None)
Quarter: 2012Q1

REPORT INFORMATION
  Report Type: 
  Country: None (occurrence: None)
  Receive Date: 20120129
  Receipt Date: 20111006
  Transmission Date: 20120608
  Serious: No
  Sender: FDA-Public Use
  Company Number: US-ABBOTT-11P-163-0861831-00

PATIENT
  Age: 41 Year
  Sex: Female

DRUGS (8)
  1. HUMIRA [Suspect]
     Indication: ANKYLOSING SPONDYLITIS
     Dates: start: 20110924
  2. LEXAPRO [Concomitant]
     Indication: ANXIETY
  3. ADDERALL XR 10 [Concomitant]
     Indication: FATIGUE
  4. FENTANYL-100 [Concomitant]
     Indication: PAIN
     Dosage: EVERY 3 DAYS ROTATING WITH EVERY 4 DAYS
  5. MOTRIN [Concomitant]
     Indication: PAIN
  6. IBUPROFEN (ADVIL) [Concomitant]
     Indication: PAIN
  7. LEXAPRO [Concomitant]
     Indication: DEPRESSION
  8. VALIUM [Concomitant]
     Indication: MUSCLE RELAXANT THERAPY
     Dosage: DAILY, AS NEEDED

REACTIONS (4)
  - INJECTION SITE PAIN [None]
  - PRODUCTIVE COUGH [None]
  - UNEVALUABLE EVENT [None]
  - NECK PAIN [None]
